FAERS Safety Report 7972306-0 (Version None)
Quarter: 2011Q4

REPORT INFORMATION
  Report Type: 
  Country: None (occurrence: None)
  Receive Date: 20111213
  Receipt Date: 20111205
  Transmission Date: 20120403
  Serious: No
  Sender: FDA-Public Use
  Company Number: US-BIOGENIDEC-2011BI039367

PATIENT
  Sex: Female

DRUGS (4)
  1. TYSABRI [Suspect]
     Indication: MULTIPLE SCLEROSIS
     Route: 042
     Dates: start: 20111011
  2. CLARITIN [Concomitant]
     Indication: PREMEDICATION
     Dates: start: 20111001
  3. ACETAMINOPHEN [Concomitant]
     Indication: PREMEDICATION
     Dates: start: 20111001
  4. SYNTHROID [Concomitant]
     Indication: HYPOTHYROIDISM
     Dates: start: 19720101

REACTIONS (18)
  - GENERAL SYMPTOM [None]
  - DEVICE RELATED INFECTION [None]
  - DYSGEUSIA [None]
  - CATHETER SITE OEDEMA [None]
  - BLOOD PRESSURE INCREASED [None]
  - MUSCLE SPASMS [None]
  - CATHETER SITE SWELLING [None]
  - DYSPNOEA [None]
  - FATIGUE [None]
  - APHASIA [None]
  - PARAESTHESIA [None]
  - CATHETER SITE ERYTHEMA [None]
  - TACHYCARDIA [None]
  - HYPERTENSION [None]
  - TREMOR [None]
  - NAUSEA [None]
  - HEART RATE INCREASED [None]
  - BALANCE DISORDER [None]
